FAERS Safety Report 13928367 (Version 2)
Quarter: 2017Q3

REPORT INFORMATION
  Report Type: Spontaneous
  Country: US (occurrence: US)
  Receive Date: 20170901
  Receipt Date: 20170906
  Transmission Date: 20171127
  Serious: No
  Sender: FDA-Public Use
  Company Number: US-PFIZER INC-2017371824

PATIENT
  Age: 72 Year
  Sex: Male

DRUGS (2)
  1. BOSULIF [Suspect]
     Active Substance: BOSUTINIB MONOHYDRATE
     Dosage: 500 MG (5 TABLETS OF 100 MG), 1X/DAY
     Route: 048
  2. BOSULIF [Suspect]
     Active Substance: BOSUTINIB MONOHYDRATE
     Indication: CHRONIC MYELOID LEUKAEMIA
     Dosage: 500 MG (5 TABLETS OF 100 MG), 1X/DAY
     Route: 048
     Dates: start: 20170822

REACTIONS (9)
  - Headache [Unknown]
  - Myalgia [Unknown]
  - Abdominal pain [Unknown]
  - Odynophagia [Unknown]
  - Oropharyngeal pain [Unknown]
  - Nausea [Unknown]
  - Condition aggravated [Unknown]
  - Ear pain [Unknown]
  - Constipation [Recovering/Resolving]
